FAERS Safety Report 9830161 (Version 1)
Quarter: 2014Q1

REPORT INFORMATION
  Report Type: Spontaneous
  Country: IT (occurrence: IT)
  Receive Date: 20140120
  Receipt Date: 20140120
  Transmission Date: 20141002
  Serious: Yes (Hospitalization, Other)
  Sender: FDA-Public Use
  Company Number: IT-DRREDDYS-USA/ITL/14/0037137

PATIENT
  Age: 63 Year
  Sex: Female

DRUGS (5)
  1. OLANZAPINE [Suspect]
     Indication: DEPRESSION
     Dosage: 10 MG PER DAY EVERY EVENING
     Route: 065
  2. ARIPIPRAZOLE [Interacting]
     Indication: DEPRESSION
     Route: 065
  3. TRIAZOLAM [Concomitant]
     Indication: DEPRESSION
     Dosage: 0.25 MG 1 CP EVERY NIGHT
     Route: 065
  4. ALPRAZOLAM [Concomitant]
     Indication: DEPRESSION
     Dosage: 0.25 MG 1 CP EVERY MORNING
     Route: 065
  5. PAROXETINE [Concomitant]
     Indication: DEPRESSION
     Dosage: 20 MG HALF CP AFTER LUNCH
     Route: 065

REACTIONS (2)
  - Neuroleptic malignant syndrome [Recovered/Resolved]
  - Drug interaction [Unknown]
